FAERS Safety Report 4276194-8 (Version None)
Quarter: 2004Q1

REPORT INFORMATION
  Report Type: 
  Country: None (occurrence: None)
  Receive Date: 20040121
  Receipt Date: 20020214
  Transmission Date: 20041129
  Serious: No
  Sender: FDA-Public Use
  Company Number: US-GLAXOSMITHKLINE-A0383329A

PATIENT
  Age: 48 Year
  Sex: Male
  Weight: 72.3 kg

DRUGS (11)
  1. ZIAGEN [Suspect]
     Indication: HIV INFECTION
     Dosage: 300MG TWICE PER DAY
     Route: 048
     Dates: start: 19970901, end: 20011001
  2. KALETRA [Concomitant]
     Indication: HIV INFECTION
     Route: 048
     Dates: start: 20020402
  3. AGENERASE [Concomitant]
     Indication: HIV INFECTION
     Route: 048
     Dates: start: 20020402
  4. T-20 [Concomitant]
     Indication: HIV INFECTION
     Dates: start: 20020402
  5. LAMIVUDINE [Concomitant]
     Indication: HIV INFECTION
     Route: 048
     Dates: start: 20020402
  6. TENOFOVIR [Concomitant]
     Indication: HIV INFECTION
     Dates: start: 20020402
  7. AZITHROMYCIN [Concomitant]
  8. BACTRIM [Concomitant]
  9. VALCYTE [Concomitant]
  10. SERZONE [Concomitant]
  11. LEVAQUIN [Concomitant]
     Indication: BRONCHITIS

REACTIONS (10)
  - CHILLS [None]
  - DIARRHOEA [None]
  - FATIGUE [None]
  - HYPERSENSITIVITY [None]
  - MALAISE [None]
  - NAUSEA [None]
  - PERICARDITIS [None]
  - PYREXIA [None]
  - STAPHYLOCOCCAL BACTERAEMIA [None]
  - VOMITING [None]
